FAERS Safety Report 25395696 (Version 4)
Quarter: 2025Q3

REPORT INFORMATION
  Report Type: Spontaneous
  Country: BR (occurrence: BR)
  Receive Date: 20250604
  Receipt Date: 20250828
  Transmission Date: 20251020
  Serious: Yes (Death, Hospitalization, Other)
  Sender: TAKEDA
  Company Number: BR-TAKEDA-2025TUS049701

PATIENT
  Age: 18 Year
  Sex: Male
  Weight: 69 kg

DRUGS (14)
  1. ENTYVIO [Suspect]
     Active Substance: VEDOLIZUMAB
     Indication: Colitis ulcerative
  2. ENTYVIO [Suspect]
     Active Substance: VEDOLIZUMAB
  3. ENTYVIO [Suspect]
     Active Substance: VEDOLIZUMAB
  4. MESALAMINE [Suspect]
     Active Substance: MESALAMINE
     Indication: Colitis ulcerative
  5. MESALAMINE [Suspect]
     Active Substance: MESALAMINE
  6. MESALAMINE [Suspect]
     Active Substance: MESALAMINE
  7. MESALAMINE [Suspect]
     Active Substance: MESALAMINE
  8. MESALAMINE [Suspect]
     Active Substance: MESALAMINE
  9. MESALAMINE [Suspect]
     Active Substance: MESALAMINE
  10. MESALAMINE [Suspect]
     Active Substance: MESALAMINE
  11. MESALAMINE [Suspect]
     Active Substance: MESALAMINE
  12. MESALAMINE [Suspect]
     Active Substance: MESALAMINE
  13. MESALAMINE [Suspect]
     Active Substance: MESALAMINE
  14. MESALAMINE [Suspect]
     Active Substance: MESALAMINE

REACTIONS (6)
  - Hepatitis fulminant [Fatal]
  - Shock haemorrhagic [Fatal]
  - Coagulopathy [Fatal]
  - General physical health deterioration [Fatal]
  - Liver transplant rejection [Not Recovered/Not Resolved]
  - Sepsis [Not Recovered/Not Resolved]

NARRATIVE: CASE EVENT DATE: 20250525
